FAERS Safety Report 9891274 (Version 1)
Quarter: 2014Q1

REPORT INFORMATION
  Report Type: Spontaneous
  Country: TR (occurrence: None)
  Receive Date: 20140210
  Receipt Date: 20140210
  Transmission Date: 20141002
  Serious: Yes (Other)
  Sender: FDA-Public Use
  Company Number: TR-DEXPHARM-20140022

PATIENT
  Sex: Female

DRUGS (1)
  1. DICIDERAL [Suspect]
     Indication: INFECTION PROPHYLAXIS
     Route: 061

REACTIONS (2)
  - Hyperchloraemia [None]
  - Sepsis [None]
